FAERS Safety Report 7841519-0 (Version None)
Quarter: 2011Q4

REPORT INFORMATION
  Report Type: 
  Country: None (occurrence: None)
  Receive Date: 20111020
  Receipt Date: 20110926
  Transmission Date: 20120403
  Serious: Yes (Other)
  Sender: FDA-Public Use
  Company Number: 2011090174

PATIENT
  Age: 57 Year
  Sex: Female
  Weight: 72.5755 kg

DRUGS (1)
  1. VIVARIN 200MG TABLET [Suspect]
     Indication: FATIGUE
     Dosage: (AS REQUIRED),ORAL
     Route: 048
     Dates: start: 20110101

REACTIONS (1)
  - RHABDOMYOLYSIS [None]
